FAERS Safety Report 9154003 (Version 1)
Quarter: 2013Q1

REPORT INFORMATION
  Report Type: Spontaneous
  Country: JP (occurrence: JP)
  Receive Date: 20130311
  Receipt Date: 20130311
  Transmission Date: 20140127
  Serious: Yes (Other)
  Sender: FDA-Public Use
  Company Number: JP-ASTELLAS-2013JP003560

PATIENT
  Age: 20 Month
  Sex: Male

DRUGS (5)
  1. PROGRAF [Suspect]
     Indication: CROHN^S DISEASE
     Route: 065
  2. 5 ASA [Concomitant]
     Indication: CROHN^S DISEASE
     Route: 065
  3. CORTICOSTEROID NOS [Concomitant]
     Indication: CROHN^S DISEASE
     Route: 065
  4. CORTICOSTEROID NOS [Concomitant]
     Route: 065
  5. METHOTREXATE [Concomitant]
     Indication: CROHN^S DISEASE
     Route: 065

REACTIONS (2)
  - Drug ineffective for unapproved indication [Unknown]
  - Crohn^s disease [Unknown]
